FAERS Safety Report 19725588 (Version 1)
Quarter: 2021Q3

REPORT INFORMATION
  Report Type: Spontaneous
  Country: US (occurrence: US)
  Receive Date: 20210819
  Receipt Date: 20210819
  Transmission Date: 20211014
  Serious: Yes (Death, Hospitalization, Other)
  Sender: FDA-Public Use
  Company Number: US-TEVA-2021-US-1942506

PATIENT
  Age: 55 Year
  Sex: Female

DRUGS (6)
  1. NORCO [Suspect]
     Active Substance: ACETAMINOPHEN\HYDROCODONE BITARTRATE
     Indication: PAIN
     Dosage: 390 DOSES OF NORCO 10/325
     Route: 065
  2. OXYCODONE [Suspect]
     Active Substance: OXYCODONE
     Indication: PAIN
     Route: 065
  3. PERCOCET [Suspect]
     Active Substance: ACETAMINOPHEN\OXYCODONE HYDROCHLORIDE
     Indication: PAIN
     Dosage: 1170 DOSES OF PERCOCET 10/325
     Route: 065
  4. HYDROCODONE [Suspect]
     Active Substance: HYDROCODONE
     Indication: PAIN
     Route: 065
  5. OXYCONTIN [Suspect]
     Active Substance: OXYCODONE HYDROCHLORIDE
     Route: 065
  6. FENTANYL. [Suspect]
     Active Substance: FENTANYL
     Indication: PAIN
     Dosage: 140 PATCHES OF FENTANYL 100
     Route: 065

REACTIONS (18)
  - Pain [Unknown]
  - Prescribed overdose [Unknown]
  - Pulmonary mass [Unknown]
  - Fall [Unknown]
  - Abnormal behaviour [Unknown]
  - Urine alcohol test positive [Unknown]
  - Spinal disorder [Unknown]
  - Loss of consciousness [Unknown]
  - Personal relationship issue [Unknown]
  - Major depression [Unknown]
  - Drug dependence [Unknown]
  - Head injury [Unknown]
  - Self-injurious ideation [Unknown]
  - Overdose [Unknown]
  - Death [Fatal]
  - Screaming [Unknown]
  - Speech disorder [Unknown]
  - Mental disorder [Unknown]

NARRATIVE: CASE EVENT DATE: 20140804
